FAERS Safety Report 21296162 (Version 2)
Quarter: 2022Q3

REPORT INFORMATION
  Report Type: Spontaneous
  Country: US (occurrence: US)
  Receive Date: 20220906
  Receipt Date: 20220930
  Transmission Date: 20221026
  Serious: No
  Sender: FDA-Public Use
  Company Number: US-VIIV HEALTHCARE LIMITED-US2022AMR125530

PATIENT
  Age: 30 Year
  Sex: Male
  Weight: 96.78 kg

DRUGS (4)
  1. CABENUVA [Suspect]
     Active Substance: CABOTEGRAVIR\RILPIVIRINE
     Indication: Product used for unknown indication
     Dosage: UNK UNK, Z (600/900MG EVERY 2 MONTHS)
     Dates: start: 2022, end: 20220920
  2. CABENUVA [Suspect]
     Active Substance: CABOTEGRAVIR\RILPIVIRINE
  3. CABENUVA [Suspect]
     Active Substance: CABOTEGRAVIR\RILPIVIRINE
  4. BIKTARVY [Concomitant]
     Active Substance: BICTEGRAVIR SODIUM\EMTRICITABINE\TENOFOVIR ALAFENAMIDE FUMARATE
     Indication: Product used for unknown indication
     Dosage: UNK

REACTIONS (7)
  - Alanine aminotransferase increased [Unknown]
  - Liver function test increased [Unknown]
  - Aspartate aminotransferase increased [Unknown]
  - Muscle fatigue [Recovering/Resolving]
  - Myalgia [Unknown]
  - High density lipoprotein increased [Unknown]
  - Low density lipoprotein increased [Unknown]

NARRATIVE: CASE EVENT DATE: 20220101
